FAERS Safety Report 5444373-X (Version None)
Quarter: 2007Q3

REPORT INFORMATION
  Report Type: 
  Country: None (occurrence: None)
  Receive Date: 20070906
  Receipt Date: 20070904
  Transmission Date: 20080115
  Serious: Yes (Other)
  Sender: FDA-Public Use
  Company Number: GXKR2007GB03062

PATIENT
  Sex: Male

DRUGS (2)
  1. RISPERIDONE [Suspect]
     Indication: AGGRESSION
     Dosage: 1.5 MG, BID
     Route: 048
  2. OXCARBAZEPINE [Suspect]
     Dosage: 300 MG, BID
     Route: 048

REACTIONS (1)
  - TIC [None]
